FAERS Safety Report 8916581 (Version 2)
Quarter: 2012Q4

REPORT INFORMATION
  Report Type: Report from Study
  Country: DE (occurrence: DE)
  Receive Date: 20121120
  Receipt Date: 20121127
  Transmission Date: 20130627
  Serious: Yes (Hospitalization)
  Sender: FDA-Public Use
  Company Number: DE-TEVA-371012USA

PATIENT
  Age: 71 Year
  Sex: Male
  Weight: 71.8 kg

DRUGS (5)
  1. TREANDA [Suspect]
     Route: 042
     Dates: start: 20121108
  2. LENALIDOMIDE [Suspect]
     Route: 048
  3. RITUXIMAB [Suspect]
     Route: 042
     Dates: start: 20121107
  4. MONO EMBOLEX [Concomitant]
     Dosage: 3000 IE
     Route: 058
     Dates: start: 20121109, end: 20121110
  5. CLEXANE [Concomitant]
     Dosage: 0.6
     Dates: start: 20121111

REACTIONS (1)
  - Pneumonia [Not Recovered/Not Resolved]
